FAERS Safety Report 11492008 (Version 1)
Quarter: 2015Q3

REPORT INFORMATION
  Report Type: Spontaneous
  Country: US (occurrence: US)
  Receive Date: 20150910
  Receipt Date: 20150910
  Transmission Date: 20151125
  Serious: No
  Sender: FDA-Public Use
  Company Number: US-BAYER-2015-414605

PATIENT
  Age: 77 Year
  Sex: Female
  Weight: 58.95 kg

DRUGS (1)
  1. CLARITIN-D 12 HOUR [Suspect]
     Active Substance: LORATADINE\PSEUDOEPHEDRINE SULFATE
     Indication: NASAL CONGESTION
     Dosage: 1 DF, QD
     Route: 048
     Dates: start: 20150823, end: 20150901

REACTIONS (2)
  - Drug ineffective [None]
  - Product use issue [Unknown]

NARRATIVE: CASE EVENT DATE: 20150823
